FAERS Safety Report 14905082 (Version 2)
Quarter: 2019Q4

REPORT INFORMATION
  Report Type: Spontaneous
  Country: US (occurrence: US)
  Receive Date: 20180517
  Receipt Date: 20191029
  Transmission Date: 20200122
  Serious: No
  Sender: FDA-Public Use
  Company Number: US-SA-2017SA179956

PATIENT
  Age: 62 Year
  Sex: Male
  Weight: 112.04 kg

DRUGS (1)
  1. LANTUS SOLOSTAR [Suspect]
     Active Substance: INSULIN GLARGINE
     Indication: TYPE 2 DIABETES MELLITUS
     Dosage: 50 DF,QD
     Route: 058
     Dates: start: 2007

REACTIONS (2)
  - Device operational issue [Unknown]
  - Incorrect dose administered [Unknown]
